FAERS Safety Report 4939147-X (Version None)
Quarter: 2006Q1

REPORT INFORMATION
  Report Type: 
  Country: None (occurrence: None)
  Receive Date: 20060306
  Receipt Date: 20060221
  Transmission Date: 20060701
  Serious: Yes (Hospitalization)
  Sender: FDA-Public Use
  Company Number: 2006026532

PATIENT
  Age: 51 Year
  Sex: 0

DRUGS (19)
  1. HYDROCORTISONE ACETATE [Suspect]
     Indication: ILL-DEFINED DISORDER
     Dosage: UNKNOWN
     Route: 065
  2. FLUCONAZOLE [Suspect]
     Indication: ILL-DEFINED DISORDER
     Dosage: UNKNOWN
     Route: 065
  3. HEPARIN SODIUM [Suspect]
     Indication: ILL-DEFINED DISORDER
     Dosage: UNKNOWN
     Route: 065
  4. CLOZAPINE [Suspect]
     Indication: ILL-DEFINED DISORDER
     Dosage: UNKNOWN
     Route: 065
  5. FENTANYL [Suspect]
     Indication: ILL-DEFINED DISORDER
     Dosage: UNKNOWN
     Route: 065
  6. ACETAMINOPHEN [Suspect]
     Indication: ILL-DEFINED DISORDER
     Dosage: UNKNOWN
     Route: 065
  7. LEVOTHYROXINE SODIUM [Concomitant]
  8. CIPROFLOXACIN [Concomitant]
  9. VALPROIC ACID [Concomitant]
  10. RANITIDINE [Concomitant]
  11. AMISULPRIDE (AMISULPRIDE) [Concomitant]
  12. LITHIUM (LITHIUM) [Concomitant]
  13. LACTULOSE [Concomitant]
  14. MIDAZOLAM HCL [Concomitant]
  15. PROPOFOL [Concomitant]
  16. NOREPINEPHRINE BITARTRATE [Concomitant]
  17. INSULIN (INSULIN) [Concomitant]
  18. ENOXAPARIN SODIUM [Concomitant]
  19. CLOZAPINE [Concomitant]

REACTIONS (1)
  - LOSS OF CONSCIOUSNESS [None]
